FAERS Safety Report 10261584 (Version 4)
Quarter: 2014Q3

REPORT INFORMATION
  Report Type: Spontaneous
  Country: JP (occurrence: JP)
  Receive Date: 20140626
  Receipt Date: 20140808
  Transmission Date: 20150326
  Serious: Yes (Other)
  Sender: FDA-Public Use
  Company Number: JP-NOVOPROD-413456

PATIENT
  Age: 73 Year
  Sex: Male

DRUGS (10)
  1. MEQUITAZINE [Concomitant]
     Active Substance: MEQUITAZINE
     Indication: ERYTHEMA
     Dosage: 2 TAB, QD
     Route: 065
  2. HIRUDOID                           /00723701/ [Concomitant]
     Indication: RASH
  3. MECTECT [Concomitant]
     Indication: OEDEMA
  4. MEQUITAZINE [Concomitant]
     Active Substance: MEQUITAZINE
     Indication: ERYTHEMA
     Dosage: 2 TAB, QD
     Route: 065
  5. ANTEBATE [Concomitant]
     Active Substance: BETAMETHASONE DIPROPIONATE
     Indication: ERYTHEMA
     Dosage: UNK
     Route: 065
  6. MEQUITAZINE [Concomitant]
     Active Substance: MEQUITAZINE
     Indication: OEDEMA
  7. SUREPOST [Suspect]
     Active Substance: REPAGLINIDE
     Indication: DIABETES MELLITUS
     Dosage: 0.5 MG, TID
     Route: 048
     Dates: end: 20140606
  8. FUSIDATE [Concomitant]
     Indication: RASH
     Dosage: UNK
  9. MECTECT [Concomitant]
     Indication: ERYTHEMA
     Dosage: 2 TAB, QD
     Route: 048
  10. MECTECT [Concomitant]
     Indication: ERYTHEMA
     Dosage: 2 TAB, QD
     Route: 048

REACTIONS (1)
  - Drug eruption [Recovering/Resolving]

NARRATIVE: CASE EVENT DATE: 20140512
